FAERS Safety Report 9013348 (Version 1)
Quarter: 2013Q1

REPORT INFORMATION
  Report Type: Spontaneous
  Country: NO (occurrence: NO)
  Receive Date: 20130114
  Receipt Date: 20130114
  Transmission Date: 20140127
  Serious: Yes (Death)
  Sender: FDA-Public Use
  Company Number: NO-TEVA-379649ISR

PATIENT
  Age: 82 Year
  Sex: Female

DRUGS (8)
  1. METFORMIN [Suspect]
     Indication: DIABETES MELLITUS
     Dosage: 2.5 GRAM DAILY; 2+1+2 TABLETS (500 MG) DAILY
     Route: 048
  2. RENITEC COMP [Concomitant]
     Dosage: 1 DOSAGE FORMS DAILY; ENALPRIL 20MG;HYDROCHLOROTHIAZIDE 12,5MG
     Route: 048
  3. LEVAXIN [Concomitant]
     Dosage: 100 MG DAILY BUT 200 MG ON MONDAYS
     Route: 048
  4. ZYLORIC [Concomitant]
     Dosage: 300 MILLIGRAM DAILY;
     Route: 048
  5. SIMVASTATIN [Concomitant]
     Dosage: 30 MILLIGRAM DAILY;
     Route: 048
  6. BURINEX [Concomitant]
     Dosage: 2 MILLIGRAM DAILY;
     Route: 048
  7. EPINAT [Concomitant]
     Dosage: 100 MILLIGRAM DAILY;
     Route: 048
  8. SORBANGIL [Concomitant]
     Dosage: 60 MILLIGRAM DAILY;
     Route: 048

REACTIONS (5)
  - Lactic acidosis [Fatal]
  - Renal failure acute [Fatal]
  - Toxicity to various agents [Fatal]
  - Somnolence [Fatal]
  - Hypotension [Fatal]
